FAERS Safety Report 4946180-0 (Version None)
Quarter: 2006Q1

REPORT INFORMATION
  Report Type: 
  Country: None (occurrence: None)
  Receive Date: 20060118
  Receipt Date: 20050701
  Transmission Date: 20060701
  Serious: Yes (Other)
  Sender: FDA-Public Use
  Company Number: US-JNJFOC-20050300425

PATIENT
  Age: 48 Year
  Sex: Female
  Weight: 59.1491 kg

DRUGS (7)
  1. DOXIL [Suspect]
     Dosage: SEE IMAGE
     Route: 042
     Dates: start: 20041220, end: 20041220
  2. DOXIL [Suspect]
     Dosage: SEE IMAGE
     Route: 042
     Dates: start: 20050110, end: 20050110
  3. DOXIL [Suspect]
     Dosage: SEE IMAGE
     Route: 042
     Dates: start: 20050131, end: 20050131
  4. DOXIL [Suspect]
     Dosage: SEE IMAGE
     Route: 042
     Dates: start: 20050301, end: 20050301
  5. ARANESP [Concomitant]
  6. ATIVAN [Concomitant]
  7. RESTORIL [Concomitant]

REACTIONS (2)
  - PALMAR-PLANTAR ERYTHRODYSAESTHESIA SYNDROME [None]
  - STOMATITIS [None]
